FAERS Safety Report 5754241-1 (Version None)
Quarter: 2008Q2

REPORT INFORMATION
  Report Type: 
  Country: None (occurrence: None)
  Receive Date: 20080530
  Receipt Date: 20080522
  Transmission Date: 20081010
  Serious: Yes (Life-Threatening, Hospitalization, Other)
  Sender: FDA-Public Use
  Company Number: US-ABBOTT-08P-163-0448626-01

PATIENT
  Sex: Male
  Weight: 94.432 kg

DRUGS (4)
  1. RITONAVIR SOFT GELATIN CAPSULES [Suspect]
     Indication: HIV INFECTION
     Route: 048
     Dates: start: 20060714
  2. TMC 125 [Concomitant]
     Indication: HIV INFECTION
     Route: 048
     Dates: start: 20060714
  3. PREZISTA [Concomitant]
     Indication: HIV INFECTION
     Route: 048
     Dates: start: 20060714
  4. PREZISTA [Concomitant]
     Indication: HIV INFECTION
     Dates: start: 20060714

REACTIONS (1)
  - MYOCARDIAL INFARCTION [None]
